FAERS Safety Report 21890352 (Version 1)
Quarter: 2023Q1

REPORT INFORMATION
  Report Type: Spontaneous
  Country: CN (occurrence: CN)
  Receive Date: 20230120
  Receipt Date: 20230120
  Transmission Date: 20230418
  Serious: Yes (Other)
  Sender: FDA-Public Use
  Company Number: CN-PFIZER INC-PV202300011490

PATIENT
  Age: 68 Year
  Sex: Male

DRUGS (4)
  1. EPIRUBICIN HYDROCHLORIDE [Suspect]
     Active Substance: EPIRUBICIN HYDROCHLORIDE
     Indication: Hepatic cancer
     Dosage: 30 MG, 1X/DAY
     Route: 065
     Dates: start: 20230105, end: 20230105
  2. OXALIPLATIN [Suspect]
     Active Substance: OXALIPLATIN
     Indication: Hepatic cancer
     Dosage: 100 MG, 1X/DAY
     Route: 065
     Dates: start: 20230105, end: 20230105
  3. IOVERSOL [Concomitant]
     Active Substance: IOVERSOL
     Indication: Hepatic cancer
     Dosage: 150 MG, 1X/DAY
     Route: 065
     Dates: start: 20230105, end: 20230105
  4. ETHIODIZED POPPYSEED OIL [Concomitant]
     Indication: Hepatic cancer
     Dosage: 20 ML, 1X/DAY
     Route: 065
     Dates: start: 20230105, end: 20230105

REACTIONS (2)
  - Alanine aminotransferase increased [Recovering/Resolving]
  - Aspartate aminotransferase increased [Recovering/Resolving]

NARRATIVE: CASE EVENT DATE: 20230108
